FAERS Safety Report 7765117-2 (Version None)
Quarter: 2011Q3

REPORT INFORMATION
  Report Type: 
  Country: None (occurrence: None)
  Receive Date: 20110830
  Receipt Date: 20110608
  Transmission Date: 20111222
  Serious: No
  Sender: FDA-Public Use
  Company Number: 11-0560

PATIENT
  Age: 78 Year
  Sex: Female

DRUGS (2)
  1. XEOMIN [Suspect]
     Indication: BLEPHAROSPASM
     Dosage: (200 IU,1 IN 1 TOTAL),INTRAMUSCULAR
     Route: 030
     Dates: start: 20110602, end: 20110602
  2. XEOMIN [Suspect]
     Indication: TORTICOLLIS
     Dosage: (200 IU,1 IN 1 TOTAL),INTRAMUSCULAR
     Route: 030
     Dates: start: 20110602, end: 20110602

REACTIONS (6)
  - DEPRESSED LEVEL OF CONSCIOUSNESS [None]
  - SPEECH DISORDER [None]
  - CONDITION AGGRAVATED [None]
  - PAIN IN EXTREMITY [None]
  - FATIGUE [None]
  - MUSCULAR WEAKNESS [None]
